FAERS Safety Report 9339775 (Version 1)
Quarter: 2013Q2

REPORT INFORMATION
  Report Type: Spontaneous
  Country: DK (occurrence: None)
  Receive Date: 20130605
  Receipt Date: 20130605
  Transmission Date: 20140414
  Serious: Yes (Other)
  Sender: FDA-Public Use
  Company Number: FK201301764

PATIENT
  Age: 69 Year
  Sex: Female

DRUGS (10)
  1. EPIRUBICIN [Suspect]
     Indication: BREAST CANCER
  2. OXALIPLATIN [Suspect]
     Indication: BREAST CANCER
  3. LETROZOLE [Suspect]
     Indication: BREAST CANCER
  4. VINORELBINE [Concomitant]
     Indication: BREAST CANCER
  5. TAMOXIFEN [Suspect]
     Indication: BREAST CANCER
  6. HERCEPTIN [Suspect]
     Indication: BREAST CANCER
  7. XELODA [Suspect]
     Indication: BREAST CANCER
  8. TAXOTERE [Suspect]
     Indication: BREAST CANCER
  9. LAPATINIB [Suspect]
     Indication: BREAST CANCER
  10. TAXOL [Concomitant]
     Indication: BREAST CANCER

REACTIONS (3)
  - Metastases to liver [None]
  - Disease progression [None]
  - Breast cancer [None]
